FAERS Safety Report 7512287-7 (Version None)
Quarter: 2011Q2

REPORT INFORMATION
  Report Type: 
  Country: None (occurrence: None)
  Receive Date: 20110531
  Receipt Date: 20110518
  Transmission Date: 20111010
  Serious: Yes (Hospitalization)
  Sender: FDA-Public Use
  Company Number: PHHY2011JP42896

PATIENT
  Age: 42 Year
  Sex: Female

DRUGS (1)
  1. TEGRETOL [Suspect]
     Indication: TRIGEMINAL NEURALGIA
     Dosage: UNK
     Route: 048
     Dates: start: 20110208, end: 20110303

REACTIONS (5)
  - ERYTHEMA [None]
  - SKIN TEST POSITIVE [None]
  - AURICULAR SWELLING [None]
  - LIP SWELLING [None]
  - STOMATITIS [None]
